FAERS Safety Report 9392310 (Version 1)
Quarter: 2013Q3

REPORT INFORMATION
  Report Type: Spontaneous
  Country: ZA (occurrence: ZA)
  Receive Date: 20130710
  Receipt Date: 20130710
  Transmission Date: 20140515
  Serious: Yes (Hospitalization)
  Sender: FDA-Public Use
  Company Number: ZA-RANBAXY-2013R5-71017

PATIENT
  Age: 81 Year
  Sex: 0

DRUGS (5)
  1. AMLODIPINE [Suspect]
     Indication: HYPERTENSION
     Dosage: 10 MG DAILY
     Route: 065
     Dates: start: 20130403, end: 20130603
  2. LISINOPRIL [Interacting]
     Indication: HYPERTENSION
     Dosage: 20 MG DAILY
     Route: 065
     Dates: start: 20130403, end: 20130603
  3. OTC COLD + FLU MEDICATION [Interacting]
     Indication: NASOPHARYNGITIS
     Dosage: UNK
     Route: 065
  4. OTC COLD + FLU MEDICATION [Interacting]
     Indication: INFLUENZA
  5. MYOPRIN [Concomitant]
     Indication: PRODUCT USED FOR UNKNOWN INDICATION
     Dosage: 100 MG DAILY
     Route: 065

REACTIONS (3)
  - Blood pressure increased [Unknown]
  - Drug interaction [Recovered/Resolved]
  - Drug ineffective [Unknown]
